FAERS Safety Report 6402961-8 (Version None)
Quarter: 2009Q4

REPORT INFORMATION
  Report Type: 
  Country: None (occurrence: None)
  Receive Date: 20091016
  Receipt Date: 20091005
  Transmission Date: 20100525
  Serious: Yes (Other)
  Sender: FDA-Public Use
  Company Number: JP-ELI_LILLY_AND_COMPANY-JP200909001769

PATIENT
  Sex: Female
  Weight: 57 kg

DRUGS (4)
  1. HUMALOG [Suspect]
     Indication: GESTATIONAL DIABETES
     Dosage: 2 IU, 3/D
     Route: 058
     Dates: start: 20090825, end: 20090901
  2. HUMALOG [Suspect]
     Route: 058
     Dates: start: 20090901, end: 20090916
  3. UTEMERIN [Concomitant]
     Indication: THREATENED LABOUR
     Dosage: 5 MG, AS NEEDED
     Route: 048
  4. ZITHROMAX [Concomitant]
     Indication: CHLAMYDIAL CERVICITIS
     Dosage: 1000 MG, AS NEEDED
     Route: 048

REACTIONS (3)
  - DRUG EXPOSURE DURING PREGNANCY [None]
  - HEPATIC FUNCTION ABNORMAL [None]
  - PREMATURE LABOUR [None]
